FAERS Safety Report 8800967 (Version 1)
Quarter: 2012Q4

REPORT INFORMATION
  Report Type: 
  Country: DE (occurrence: DE)
  Receive Date: 20120920
  Receipt Date: 20120920
  Transmission Date: 20130627
  Serious: Yes (Other)
  Sender: FDA-Public Use
  Company Number: DE-ROCHE-1130659

PATIENT
  Sex: Male

DRUGS (14)
  1. XOLAIR [Suspect]
     Indication: ASTHMA
     Dosage: syringe, every 2 to 3 weeks
     Route: 058
  2. RAMIPRIL [Concomitant]
     Route: 065
  3. SYMBICORT [Concomitant]
     Dosage: 329/9
     Route: 065
  4. SPIRIVA [Concomitant]
     Route: 065
  5. METFORMIN [Concomitant]
     Route: 065
  6. OMEPRAZOLE [Concomitant]
     Route: 065
  7. TOREM [Concomitant]
     Route: 065
  8. ALLOPURINOL [Concomitant]
     Route: 065
  9. SIMVASTATIN [Concomitant]
     Route: 065
  10. IMBUN [Concomitant]
     Route: 065
  11. LOPERAMIDE [Concomitant]
     Route: 065
  12. BERODUAL [Concomitant]
  13. NOVALGIN [Concomitant]
  14. SALBUTAMOL [Concomitant]

REACTIONS (2)
  - Cardiac disorder [Unknown]
  - Blood pressure fluctuation [Unknown]
